FAERS Safety Report 16364433 (Version 3)
Quarter: 2019Q2

REPORT INFORMATION
  Report Type: Spontaneous
  Country: JP (occurrence: JP)
  Receive Date: 20190528
  Receipt Date: 20190618
  Transmission Date: 20190711
  Serious: Yes (Other)
  Sender: FDA-Public Use
  Company Number: JP-TAKEDA-2019TJP011293

PATIENT
  Age: 58 Year
  Sex: Female
  Weight: 61.7 kg

DRUGS (4)
  1. VOGLIBOSE [Concomitant]
     Active Substance: VOGLIBOSE
     Indication: TYPE 2 DIABETES MELLITUS
     Dosage: 0.2 MILLIGRAM, TID
     Route: 048
     Dates: start: 20180709, end: 20190521
  2. INISYNC COMBINATION TABLETS [Suspect]
     Active Substance: ALOGLIPTIN BENZOATE\METFORMIN HYDROCHLORIDE
     Indication: TYPE 2 DIABETES MELLITUS
     Dosage: 1 DOSAGE FORM, QD
     Route: 048
     Dates: start: 20180820, end: 20190521
  3. DAISAIKOTO                         /07976201/ [Suspect]
     Active Substance: HERBALS
     Indication: CHOLELITHIASIS
     Dosage: 2.5 GRAM, TID
     Route: 048
     Dates: start: 20190422, end: 20190521
  4. DAISAIKOTO                         /07976201/ [Suspect]
     Active Substance: HERBALS
     Indication: TYPE 2 DIABETES MELLITUS

REACTIONS (1)
  - Rhabdomyolysis [Unknown]

NARRATIVE: CASE EVENT DATE: 20190520
